FAERS Safety Report 12248972 (Version 1)
Quarter: 2016Q2

REPORT INFORMATION
  Report Type: Spontaneous
  Country: US (occurrence: None)
  Receive Date: 20160407
  Receipt Date: 20160407
  Transmission Date: 20160815
  Serious: Yes (Disabling)
  Sender: FDA-Public Use
  Company Number: None

PATIENT
  Age: 68 Year
  Sex: Male
  Weight: 107.96 kg

DRUGS (21)
  1. VALSARTAM [Concomitant]
  2. METHADONE [Concomitant]
     Active Substance: METHADONE HYDROCHLORIDE
  3. FOLIC ACID. [Concomitant]
     Active Substance: FOLIC ACID
  4. SAW PALMETTO [Concomitant]
     Active Substance: SAW PALMETTO
  5. CRESTOR [Suspect]
     Active Substance: ROSUVASTATIN CALCIUM
     Indication: BLOOD CHOLESTEROL INCREASED
     Dosage: 1 TABLET AT BEDTIME
     Route: 048
  6. VITAMIN D3 [Concomitant]
     Active Substance: CHOLECALCIFEROL
  7. TURMERIC [Concomitant]
     Active Substance: TURMERIC
  8. LOW DOSE ASPIRIN [Concomitant]
     Active Substance: ASPIRIN
  9. VITAMIN C [Concomitant]
     Active Substance: ASCORBIC ACID
  10. ESCITALOPRAM [Concomitant]
     Active Substance: ESCITALOPRAM OXALATE
  11. CARVEDILOL. [Concomitant]
     Active Substance: CARVEDILOL
  12. LORZONE [Concomitant]
     Active Substance: CHLORZOXAZONE
  13. CLONAZEPAM. [Concomitant]
     Active Substance: CLONAZEPAM
  14. COLCICHINE [Concomitant]
  15. LAMOTRIGINE. [Concomitant]
     Active Substance: LAMOTRIGINE
  16. BIOFLAVONOIDS [Concomitant]
     Active Substance: BIOFLAVONOIDS
  17. HYOSCYAMINE. [Concomitant]
     Active Substance: HYOSCYAMINE
  18. VITRON-C [Concomitant]
  19. DOXAZOSIN [Concomitant]
     Active Substance: DOXAZOSIN\DOXAZOSIN MESYLATE
  20. DAILY VITAMIN [Concomitant]
     Active Substance: VITAMINS
  21. GREEN/WHITE TEA EXTRACT [Concomitant]

REACTIONS (3)
  - Gait disturbance [None]
  - Dyspnoea exertional [None]
  - Pain in extremity [None]

NARRATIVE: CASE EVENT DATE: 20160401
